FAERS Safety Report 11997388 (Version 2)
Quarter: 2016Q1

REPORT INFORMATION
  Report Type: Report from Study
  Country: JP (occurrence: JP)
  Receive Date: 20160203
  Receipt Date: 20160317
  Transmission Date: 20160526
  Serious: Yes (Hospitalization)
  Sender: FDA-Public Use
  Company Number: JP-AMGEN-JPNCT2013093936

PATIENT
  Age: 62 Year
  Sex: Male
  Weight: 70 kg

DRUGS (8)
  1. KENEI ENEMA [Concomitant]
     Indication: PREOPERATIVE CARE
     Dosage: UNK
     Route: 054
  2. MEDICON                            /00048102/ [Concomitant]
     Active Substance: DEXTROMETHORPHAN HYDROBROMIDE
     Indication: COUGH
     Dosage: UNK
     Route: 048
  3. PRIMPERAN [Concomitant]
     Active Substance: METOCLOPRAMIDE HYDROCHLORIDE
     Indication: PROPHYLAXIS
     Dosage: UNK
     Route: 065
  4. ROMIPLOSTIM [Suspect]
     Active Substance: ROMIPLOSTIM
     Indication: IMMUNE THROMBOCYTOPENIC PURPURA
     Dosage: 1 MUG/KG, QWK
     Route: 058
     Dates: start: 20110427
  5. RIZE                               /00624801/ [Concomitant]
     Active Substance: CLOTIAZEPAM
     Indication: INSOMNIA
     Dosage: UNK
     Route: 048
  6. SOLDEM 3A [Concomitant]
     Active Substance: CARBOHYDRATES\POTASSIUM CHLORIDE\SODIUM CHLORIDE\SODIUM LACTATE
     Indication: FLUID REPLACEMENT
     Dosage: UNK
     Route: 041
  7. GASTER [Concomitant]
     Active Substance: FAMOTIDINE
     Indication: PROPHYLAXIS
     Dosage: UNK
     Route: 065
  8. FLUMARIN                           /00963302/ [Concomitant]
     Active Substance: FLOMOXEF SODIUM
     Indication: PROPHYLAXIS
     Dosage: UNK
     Route: 042

REACTIONS (8)
  - Prostatitis [Recovered/Resolved]
  - Procedural pain [Recovered/Resolved]
  - Cough [Recovered/Resolved]
  - Appendicitis [Recovered/Resolved]
  - Post procedural infection [Recovered/Resolved]
  - Nasopharyngitis [Recovered/Resolved]
  - Insomnia [Recovered/Resolved]
  - Hyperuricaemia [Not Recovered/Not Resolved]

NARRATIVE: CASE EVENT DATE: 20110630
